FAERS Safety Report 7884587-2 (Version None)
Quarter: 2011Q4

REPORT INFORMATION
  Report Type: 
  Country: None (occurrence: None)
  Receive Date: 20111102
  Receipt Date: 20111023
  Transmission Date: 20120403
  Serious: Yes (Other)
  Sender: FDA-Public Use
  Company Number: US-JNJFOC-20111012476

PATIENT
  Sex: Female

DRUGS (2)
  1. TYLENOL PM EXTRA STRENGTH [Suspect]
     Indication: PAIN
     Route: 048
  2. TYLENOL PM EXTRA STRENGTH [Suspect]
     Indication: INSOMNIA
     Route: 048

REACTIONS (8)
  - PARALYSIS [None]
  - FEELING ABNORMAL [None]
  - DYSPNOEA [None]
  - COLD SWEAT [None]
  - HYPOKINESIA [None]
  - LOSS OF CONSCIOUSNESS [None]
  - PALPITATIONS [None]
  - FAECAL INCONTINENCE [None]
